FAERS Safety Report 26128895 (Version 1)
Quarter: 2025Q4

REPORT INFORMATION
  Report Type: Spontaneous
  Country: AU (occurrence: AU)
  Receive Date: 20251208
  Receipt Date: 20251208
  Transmission Date: 20260118
  Serious: Yes (Hospitalization, Other)
  Sender: Kenvue
  Company Number: None

PATIENT
  Age: 3 Decade

DRUGS (2)
  1. ACETAMINOPHEN [Suspect]
     Active Substance: ACETAMINOPHEN
     Indication: Product used for unknown indication
     Dosage: UNK
     Route: 065
  2. PREDNISOLONE [Concomitant]
     Active Substance: PREDNISOLONE
     Indication: Focal segmental glomerulosclerosis
     Dosage: 60 MILLIGRAM, ONCE A DAY
     Route: 065

REACTIONS (2)
  - Suicide attempt [Unknown]
  - Intentional overdose [Unknown]
